FAERS Safety Report 20137830 (Version 2)
Quarter: 2021Q4

REPORT INFORMATION
  Report Type: Spontaneous
  Country: AU (occurrence: AU)
  Receive Date: 20211202
  Receipt Date: 20211217
  Transmission Date: 20220303
  Serious: Yes (Other)
  Sender: FDA-Public Use
  Company Number: AU-AMGEN-AUSSP2021187550

PATIENT
  Age: 32 Year
  Sex: Female

DRUGS (17)
  1. NPLATE [Suspect]
     Active Substance: ROMIPLOSTIM
     Indication: Immune thrombocytopenia
     Dosage: UNK
     Route: 065
     Dates: start: 202006
  2. NPLATE [Suspect]
     Active Substance: ROMIPLOSTIM
     Dosage: 500 MICROGRAM, QWK
     Route: 065
     Dates: start: 202102
  3. PREDNISOLONE [Concomitant]
     Active Substance: PREDNISOLONE
     Dosage: 80 MILLIGRAM (1MG/KG)
     Dates: start: 202003
  4. PREDNISOLONE [Concomitant]
     Active Substance: PREDNISOLONE
     Dosage: 50 MILLIGRAM, QD
     Dates: start: 202004
  5. HUMAN IMMUNOGLOBULIN G [Concomitant]
     Active Substance: HUMAN IMMUNOGLOBULIN G
     Dosage: UNK
     Dates: start: 202004
  6. HYDROXYCHLOROQUINE [Concomitant]
     Active Substance: HYDROXYCHLOROQUINE
     Dosage: UNK, FOR 3 MONTHS
  7. RITUXIMAB [Concomitant]
     Active Substance: RITUXIMAB
     Dosage: 100 MILLIGRAM, 4 TIMES/WK
     Dates: start: 202011
  8. RITUXIMAB [Concomitant]
     Active Substance: RITUXIMAB
     Dosage: 1000 MILLIGRAM X 2 DOSAGE 4 WEEKS APART
     Dates: start: 202012
  9. MYCOPHENOLIC ACID [Concomitant]
     Active Substance: MYCOPHENOLIC ACID
     Dosage: UNK
     Dates: start: 202011
  10. ELTROMBOPAG [Concomitant]
     Active Substance: ELTROMBOPAG
     Dosage: UNK
     Dates: start: 202011
  11. DAPSONE [Concomitant]
     Active Substance: DAPSONE
     Dosage: UNK
     Dates: start: 202011
  12. DAPSONE [Concomitant]
     Active Substance: DAPSONE
     Dosage: 100 MILLIGRAM, QD
     Dates: start: 202101
  13. DAPSONE [Concomitant]
     Active Substance: DAPSONE
     Dosage: 200 MILLIGRAM, QD FOR 8 WEEKS
     Dates: start: 202101
  14. VINCRISTINE [Concomitant]
     Active Substance: VINCRISTINE
     Dosage: UNK
     Dates: start: 202102
  15. CYCLOSPORINE [Concomitant]
     Active Substance: CYCLOSPORINE
     Dosage: UNK
     Dates: start: 202109
  16. DARATUMUMAB [Concomitant]
     Active Substance: DARATUMUMAB
     Dosage: UNK UNK, 4 TIMES/WK
  17. ATRA [PARACETAMOL;TRAMADOL HYDROCHLORIDE] [Concomitant]
     Dosage: 10 MILLIGRAM, BID

REACTIONS (4)
  - Meningitis aseptic [Unknown]
  - Exophthalmos [Unknown]
  - Therapeutic product effect decreased [Unknown]
  - Sciatica [Unknown]

NARRATIVE: CASE EVENT DATE: 20200801
